FAERS Safety Report 24128780 (Version 2)
Quarter: 2024Q3

REPORT INFORMATION
  Report Type: Report from Study
  Country: US (occurrence: US)
  Receive Date: 20240723
  Receipt Date: 20240727
  Transmission Date: 20241017
  Serious: Yes (Other)
  Sender: ABBVIE
  Company Number: US-ABBVIE-5844812

PATIENT
  Sex: Male

DRUGS (1)
  1. HUMIRA [Suspect]
     Active Substance: ADALIMUMAB
     Indication: Product used for unknown indication
     Route: 058
     Dates: start: 20080928

REACTIONS (4)
  - Anastomotic complication [Recovering/Resolving]
  - Gastrointestinal disorder [Recovering/Resolving]
  - Proctitis [Recovering/Resolving]
  - Colitis ulcerative [Recovering/Resolving]
